FAERS Safety Report 8030685-2 (Version None)
Quarter: 2012Q1

REPORT INFORMATION
  Report Type: 
  Country: None (occurrence: None)
  Receive Date: 20120109
  Receipt Date: 20120104
  Transmission Date: 20120608
  Serious: Yes (Other)
  Sender: FDA-Public Use
  Company Number: US-ROCHE-1027823

PATIENT
  Age: 56 Year
  Sex: Female

DRUGS (2)
  1. TAXOL [Concomitant]
     Indication: BREAST CANCER METASTATIC
     Dates: start: 20111001
  2. HERCEPTIN [Suspect]
     Indication: BREAST CANCER METASTATIC
     Dates: start: 20111001

REACTIONS (3)
  - NEUROPATHY PERIPHERAL [None]
  - TUMOUR MARKER INCREASED [None]
  - NEOPLASM MALIGNANT [None]
